FAERS Safety Report 15131349 (Version 1)
Quarter: 2018Q3

REPORT INFORMATION
  Report Type: Spontaneous
  Country: US (occurrence: US)
  Receive Date: 20180711
  Receipt Date: 20180711
  Transmission Date: 20181010
  Serious: Yes (Other)
  Sender: FDA-Public Use
  Company Number: US-BIODELIVERY SCIENCES INTERNATIONAL-2017BDSI0142

PATIENT
  Sex: Male

DRUGS (1)
  1. BUPRENORPHINE/NALOXONE [Suspect]
     Active Substance: BUPRENORPHINE\NALOXONE
     Indication: PRODUCT USED FOR UNKNOWN INDICATION
     Dosage: 6.3MG/1MG, UNKNOWN
     Route: 042
     Dates: start: 2017

REACTIONS (9)
  - Emotional distress [Unknown]
  - Dry skin [Unknown]
  - Skin disorder [Unknown]
  - Intentional product misuse [Unknown]
  - Hypoaesthesia [Unknown]
  - Skin discolouration [Unknown]
  - Dysgeusia [Unknown]
  - Peripheral swelling [Unknown]
  - Anxiety [Unknown]

NARRATIVE: CASE EVENT DATE: 201707
